FAERS Safety Report 15153576 (Version 1)
Quarter: 2018Q3

REPORT INFORMATION
  Report Type: Spontaneous
  Country: US (occurrence: US)
  Receive Date: 20180619
  Receipt Date: 20180619
  Transmission Date: 20181010
  Serious: Yes (Other)
  Sender: FDA-Public Use
  Company Number: None

PATIENT
  Age: 26 Year
  Sex: Female
  Weight: 88.45 kg

DRUGS (1)
  1. BUPRENORPHINE/NALOXONE, 2/0.5 MG [Suspect]
     Active Substance: BUPRENORPHINE\NALOXONE
     Indication: DRUG ABUSE
     Route: 060
     Dates: start: 20180607, end: 20180619

REACTIONS (1)
  - Mania [None]

NARRATIVE: CASE EVENT DATE: 20180612
